FAERS Safety Report 5529771-8 (Version None)
Quarter: 2007Q4

REPORT INFORMATION
  Report Type: 
  Country: None (occurrence: None)
  Receive Date: 20071127
  Receipt Date: 20071113
  Transmission Date: 20080405
  Serious: Yes (Other)
  Sender: FDA-Public Use
  Company Number: 07-002273

PATIENT
  Age: 44 Year
  Sex: Female
  Weight: 62.6 kg

DRUGS (3)
  1. LOESTRIN 1.5/30 [Suspect]
     Indication: CONTRACEPTION
     Dosage: 20/1000 UG, QD, ORAL
     Route: 048
     Dates: end: 20060101
  2. LOESTRIN 24 FE [Suspect]
     Indication: CONTRACEPTION
     Dosage: 20/1000 UG, QD, ORAL
     Route: 048
     Dates: start: 20070819, end: 20071106
  3. LOESTRIN 24 FE [Suspect]
     Indication: MENSTRUATION IRREGULAR
     Dosage: 20/1000 UG, QD, ORAL
     Route: 048
     Dates: start: 20070819, end: 20071106

REACTIONS (4)
  - ENDOMETRIAL DISORDER [None]
  - MIGRAINE [None]
  - SMEAR CERVIX ABNORMAL [None]
  - VISUAL DISTURBANCE [None]
